FAERS Safety Report 8185319-3 (Version None)
Quarter: 2012Q1

REPORT INFORMATION
  Report Type: 
  Country: None (occurrence: None)
  Receive Date: 20120305
  Receipt Date: 20120222
  Transmission Date: 20120608
  Serious: Yes (Other)
  Sender: FDA-Public Use
  Company Number: FR-ROCHE-1042627

PATIENT
  Sex: Male
  Weight: 56 kg

DRUGS (12)
  1. MORPHINE [Concomitant]
  2. MEDROL [Concomitant]
  3. NEXIUM [Concomitant]
  4. FORLAX (FRANCE) [Concomitant]
  5. LOVENOX [Concomitant]
  6. ZOLPIDEM [Concomitant]
  7. LORAMYC [Concomitant]
  8. LIDOCAINE [Concomitant]
  9. MOUTHWASH NOS [Concomitant]
  10. VEMURAFENIB [Suspect]
     Indication: MALIGNANT MELANOMA
     Route: 048
     Dates: start: 20110922, end: 20111025
  11. XANAX [Concomitant]
  12. PENTASA [Concomitant]

REACTIONS (1)
  - ANAEMIA [None]
